FAERS Safety Report 9817575 (Version 2)
Quarter: 2013Q4

REPORT INFORMATION
  Report Type: Spontaneous
  Country: US (occurrence: None)
  Receive Date: 20131223
  Receipt Date: 20131223
  Transmission Date: 20140711
  Serious: Yes (Other)
  Sender: FDA-Public Use
  Company Number: 219282

PATIENT
  Age: 70 Year
  Sex: Female

DRUGS (18)
  1. PICATO [Suspect]
     Indication: PRECANCEROUS CELLS PRESENT
     Dosage: (ONCE A DAY FOR 3 DAYS),DERMAL
     Dates: start: 20120926, end: 20120928
  2. ASPIRIN [Concomitant]
  3. LOSARTAN/HCTZ(HYZAAR) [Concomitant]
  4. CRESTOR [Concomitant]
  5. LORATADINE [Concomitant]
  6. ESTRADIOL [Concomitant]
  7. HYDROCODONE [Concomitant]
  8. ACETAMINOPHEN(PARACETAMOL) [Concomitant]
  9. JANTOVEN(WARFARIN SODIUM) [Concomitant]
  10. POTASSIUM CHLORIDE(POTASSIUM CHLORIDE)(TABLETS) [Concomitant]
  11. FUROSEMIDE(FUROSEMIDE) [Concomitant]
  12. MAGNESIUM OXIDE(MAGNESIUM OXIDE) [Concomitant]
  13. OMEPRAZOLE(OMEPRAZOLE) [Concomitant]
  14. MULTAQ(DRONEDARONE) [Concomitant]
  15. HYDROXYCHLOROQUINE(HYDROXYCHLOROQUINE) [Concomitant]
  16. CYMBOLTA(DULOXETINE) [Concomitant]
  17. FISH OIL(FISH OIL) [Concomitant]
  18. MULTIVITMAIN(MULTIVITAMIN) [Concomitant]

REACTIONS (6)
  - Erythema [None]
  - Burning sensation [None]
  - Blister [None]
  - Rash pustular [None]
  - Drug administered at inappropriate site [None]
  - Purulence [None]
